FAERS Safety Report 19279124 (Version 1)
Quarter: 2021Q2

REPORT INFORMATION
  Report Type: Spontaneous
  Country: US (occurrence: US)
  Receive Date: 20210520
  Receipt Date: 20210520
  Transmission Date: 20210717
  Serious: Yes (Life-Threatening, Hospitalization)
  Sender: FDA-Public Use
  Company Number: US-TEVA-2021-US-1912361

PATIENT
  Age: 53 Year
  Sex: Male

DRUGS (6)
  1. GILTERITINIB [Suspect]
     Active Substance: GILTERITINIB
     Indication: ACUTE MYELOID LEUKAEMIA
     Route: 065
  2. ISAVUCONAZOLE [Concomitant]
     Active Substance: ISAVUCONAZOLE
     Indication: FUNGAL INFECTION
     Route: 065
  3. HYDROXYUREA. [Suspect]
     Active Substance: HYDROXYUREA
     Indication: ACUTE MYELOID LEUKAEMIA
     Route: 065
  4. CEFEPIME [Concomitant]
     Active Substance: CEFEPIME HYDROCHLORIDE
     Indication: EVIDENCE BASED TREATMENT
     Route: 065
  5. VANCOMYCIN [Concomitant]
     Active Substance: VANCOMYCIN
     Indication: EVIDENCE BASED TREATMENT
     Route: 065
  6. REMDESIVIR. [Suspect]
     Active Substance: REMDESIVIR
     Indication: COVID-19 PNEUMONIA
     Route: 065

REACTIONS (4)
  - Neutropenia [Unknown]
  - Off label use [Unknown]
  - Febrile neutropenia [Unknown]
  - Drug ineffective [Unknown]
